APPROVED DRUG PRODUCT: CEFPROZIL
Active Ingredient: CEFPROZIL
Strength: 500MG
Dosage Form/Route: TABLET;ORAL
Application: A065428 | Product #002
Applicant: WOCKHARDT LTD
Approved: Jun 14, 2007 | RLD: No | RS: No | Type: DISCN